FAERS Safety Report 21379049 (Version 1)
Quarter: 2022Q3

REPORT INFORMATION
  Report Type: Spontaneous
  Country: DE (occurrence: DE)
  Receive Date: 20220927
  Receipt Date: 20220927
  Transmission Date: 20221027
  Serious: Yes (Other)
  Sender: FDA-Public Use
  Company Number: DE-BRISTOL-MYERS SQUIBB COMPANY-2022-111511

PATIENT

DRUGS (1)
  1. ELIQUIS [Suspect]
     Active Substance: APIXABAN
     Indication: Product used for unknown indication
     Route: 065

REACTIONS (5)
  - Infarction [Unknown]
  - Nausea [Unknown]
  - Gait disturbance [Unknown]
  - Nervous system disorder [Unknown]
  - Personality change [Unknown]

NARRATIVE: CASE EVENT DATE: 20220914
